FAERS Safety Report 5038732-7 (Version None)
Quarter: 2006Q2

REPORT INFORMATION
  Report Type: 
  Country: None (occurrence: None)
  Receive Date: 20060601
  Receipt Date: 20060313
  Transmission Date: 20061013
  Serious: No
  Sender: FDA-Public Use
  Company Number: 2006PV010127

PATIENT
  Age: 48 Year
  Sex: Female
  Weight: 83.9154 kg

DRUGS (6)
  1. BYETTA [Suspect]
     Indication: DIABETES MELLITUS NON-INSULIN-DEPENDENT
     Dosage: SEE IMAGE
     Route: 058
     Dates: start: 20060201, end: 20060301
  2. BYETTA [Suspect]
     Indication: DIABETES MELLITUS NON-INSULIN-DEPENDENT
     Dosage: SEE IMAGE
     Route: 058
     Dates: start: 20060304, end: 20060313
  3. GLUCOPHAGE [Concomitant]
  4. AMARYL [Concomitant]
  5. ATENOLOL [Concomitant]
  6. ATACAND [Concomitant]

REACTIONS (19)
  - ASTHENIA [None]
  - BLOOD GLUCOSE DECREASED [None]
  - BLOOD GLUCOSE INCREASED [None]
  - BLOOD PRESSURE INCREASED [None]
  - DYSARTHRIA [None]
  - DYSPEPSIA [None]
  - FATIGUE [None]
  - FEELING ABNORMAL [None]
  - FEELING JITTERY [None]
  - FLATULENCE [None]
  - HEADACHE [None]
  - INJECTION SITE PAIN [None]
  - MENTAL IMPAIRMENT [None]
  - NAUSEA [None]
  - PALLOR [None]
  - PALPITATIONS [None]
  - PARAESTHESIA [None]
  - TREMOR [None]
  - WEIGHT DECREASED [None]
